FAERS Safety Report 6181667-7 (Version None)
Quarter: 2009Q2

REPORT INFORMATION
  Report Type: 
  Country: None (occurrence: None)
  Receive Date: 20090506
  Receipt Date: 20090428
  Transmission Date: 20091009
  Serious: Yes (Other)
  Sender: FDA-Public Use
  Company Number: B0572784A

PATIENT
  Age: 46 Year
  Sex: Male

DRUGS (1)
  1. ARIXTRA [Suspect]
     Indication: ABDOMINAL OPERATION
     Dosage: 2.5MG PER DAY
     Route: 065

REACTIONS (5)
  - CHEST X-RAY ABNORMAL [None]
  - COMPUTERISED TOMOGRAM ABNORMAL [None]
  - DRUG INEFFECTIVE [None]
  - PULMONARY EMBOLISM [None]
  - SEPTIC EMBOLUS [None]
